FAERS Safety Report 15254987 (Version 1)
Quarter: 2018Q3

REPORT INFORMATION
  Report Type: Report from Study
  Country: US (occurrence: US)
  Receive Date: 20180808
  Receipt Date: 20180808
  Transmission Date: 20181010
  Serious: Yes (Other)
  Sender: FDA-Public Use
  Company Number: US-JAZZ-2018-US-000925

PATIENT
  Sex: Female
  Weight: 47.62 kg

DRUGS (18)
  1. XYREM [Suspect]
     Active Substance: SODIUM OXYBATE
     Indication: SOMNOLENCE
     Dosage: 1.5 G, BID
     Route: 048
     Dates: start: 20161230, end: 201701
  2. XYREM [Suspect]
     Active Substance: SODIUM OXYBATE
     Dosage: 4.5 G, BID
     Route: 048
     Dates: start: 201803, end: 2018
  3. ONEXTON [Concomitant]
     Active Substance: BENZOYL PEROXIDE\CLINDAMYCIN PHOSPHATE
  4. XYREM [Suspect]
     Active Substance: SODIUM OXYBATE
     Dosage: 3.75 G, BID
     Route: 048
     Dates: start: 2018
  5. EFFEXOR [Concomitant]
     Active Substance: VENLAFAXINE HYDROCHLORIDE
  6. RETIN?A [Concomitant]
     Active Substance: TRETINOIN
  7. SPIRONOLACTONE. [Concomitant]
     Active Substance: SPIRONOLACTONE
  8. XANAX [Concomitant]
     Active Substance: ALPRAZOLAM
  9. CLINDAGEL [Concomitant]
     Active Substance: CLINDAMYCIN PHOSPHATE
  10. WELLBUTRIN [Concomitant]
     Active Substance: BUPROPION HYDROCHLORIDE
  11. ACTICLATE [Concomitant]
     Active Substance: DOXYCYCLINE HYCLATE
  12. BACLOFEN. [Concomitant]
     Active Substance: BACLOFEN
  13. XYREM [Suspect]
     Active Substance: SODIUM OXYBATE
     Indication: CATAPLEXY
     Dosage: 3.75 G, BID
     Route: 048
     Dates: start: 201703, end: 2018
  14. YAZ [Concomitant]
     Active Substance: DROSPIRENONE\ETHINYL ESTRADIOL
     Indication: CONTRACEPTION
  15. XYREM [Suspect]
     Active Substance: SODIUM OXYBATE
     Indication: NARCOLEPSY
     Dosage: DOSE ADJUSTMENT
     Route: 048
     Dates: start: 201701, end: 201703
  16. NUVIGIL [Concomitant]
     Active Substance: ARMODAFINIL
  17. PROPRANOLOL [Concomitant]
     Active Substance: PROPRANOLOL HYDROCHLORIDE
     Indication: ANXIETY
  18. LAMICTAL [Concomitant]
     Active Substance: LAMOTRIGINE

REACTIONS (6)
  - Hypotension [Not Recovered/Not Resolved]
  - Weight decreased [Recovering/Resolving]
  - Temporomandibular joint syndrome [Recovering/Resolving]
  - Depression [Not Recovered/Not Resolved]
  - Stress [Recovering/Resolving]
  - Anxiety [Recovering/Resolving]
